FAERS Safety Report 5239526-X (Version None)
Quarter: 2007Q1

REPORT INFORMATION
  Report Type: 
  Country: None (occurrence: None)
  Receive Date: 20070216
  Receipt Date: 20070209
  Transmission Date: 20070707
  Serious: Yes (Other)
  Sender: FDA-Public Use
  Company Number: 2007AP00903

PATIENT
  Age: 28421 Day
  Sex: Female
  Weight: 53 kg

DRUGS (3)
  1. FELODIPINE [Suspect]
     Indication: ESSENTIAL HYPERTENSION
     Route: 048
     Dates: start: 20060905, end: 20060905
  2. ZANIDIP [Concomitant]
     Indication: ESSENTIAL HYPERTENSION
     Route: 048
     Dates: start: 20060728, end: 20060901
  3. ISOPTIN [Concomitant]
     Route: 048

REACTIONS (7)
  - CHEST PAIN [None]
  - CHILLS [None]
  - FEELING HOT [None]
  - HEADACHE [None]
  - NAUSEA [None]
  - SOMNOLENCE [None]
  - VOMITING [None]
